FAERS Safety Report 18629087 (Version 1)
Quarter: 2020Q4

REPORT INFORMATION
  Report Type: Spontaneous
  Country: US (occurrence: US)
  Receive Date: 20201217
  Receipt Date: 20201217
  Transmission Date: 20210114
  Serious: Yes (Hospitalization, Other)
  Sender: FDA-Public Use
  Company Number: US-FRESENIUS KABI-FK202013421

PATIENT
  Age: 46 Year
  Sex: Female

DRUGS (3)
  1. DOXORUBICIN (MANUFACTURER UNKNOWN) [Suspect]
     Active Substance: DOXORUBICIN
     Indication: MYXOFIBROSARCOMA
     Dosage: CHEMOTHERAPY
     Route: 065
  2. CISPLATIN (MANUFACTURER UNKNOWN) [Suspect]
     Active Substance: CISPLATIN
     Indication: MYXOFIBROSARCOMA
     Dosage: CHEMOTHERAPY
     Route: 065
  3. NO DRUG NAME [Concomitant]
     Active Substance: UNSPECIFIED INGREDIENT
     Indication: PRODUCT USED FOR UNKNOWN INDICATION
     Dosage: 44 GY IN 22 FRACTIONS
     Route: 065

REACTIONS (2)
  - Deafness [Unknown]
  - Acute kidney injury [Unknown]
